FAERS Safety Report 9460093 (Version 1)
Quarter: 2013Q3

REPORT INFORMATION
  Report Type: Spontaneous
  Country: US (occurrence: US)
  Receive Date: 20130815
  Receipt Date: 20130815
  Transmission Date: 20140515
  Serious: No
  Sender: FDA-Public Use
  Company Number: US-ROXANE LABORATORIES, INC.-2013-RO-01367RO

PATIENT
  Sex: Female

DRUGS (17)
  1. PREDNISONE [Suspect]
     Indication: RENAL TRANSPLANT
     Dosage: 5 MG
     Route: 048
  2. PROGRAF [Concomitant]
     Indication: RENAL TRANSPLANT
     Dosage: 2.5 MG
  3. MYFORTIC [Concomitant]
     Indication: RENAL TRANSPLANT
     Dosage: 1080 MG
  4. BACTRIM [Concomitant]
  5. MULTIVITAMIN [Concomitant]
  6. OMEPRAZOLE [Concomitant]
     Dosage: 20 MG
  7. BYSTOLIC [Concomitant]
     Indication: HYPERTENSION
     Dosage: 5 MG
  8. VERAPAMIL [Concomitant]
     Indication: HYPERTENSION
     Dosage: 240 MG
  9. ASPIRIN [Concomitant]
     Dosage: 81 MG
  10. LEVEMIR [Concomitant]
  11. HUMOLOG [Concomitant]
  12. METFORMIN [Concomitant]
     Dosage: 500 MG
  13. PROBIOTIC [Concomitant]
  14. GLUCOSAMINE [Concomitant]
  15. FISH OIL [Concomitant]
  16. VITAMIN D [Concomitant]
  17. CALCIUM [Concomitant]

REACTIONS (2)
  - Weight increased [Recovered/Resolved]
  - Abdominal discomfort [Recovered/Resolved]
